FAERS Safety Report 6830840-0 (Version None)
Quarter: 2010Q3

REPORT INFORMATION
  Report Type: 
  Country: None (occurrence: None)
  Receive Date: 20100712
  Receipt Date: 20100629
  Transmission Date: 20110219
  Serious: Yes (Hospitalization)
  Sender: FDA-Public Use
  Company Number: AU-NOVOPROD-301700

PATIENT
  Sex: Male
  Weight: 85 kg

DRUGS (9)
  1. NOVORAPID PENFILL [Suspect]
     Indication: TYPE 2 DIABETES MELLITUS
     Dosage: 8 IU 3 TIMES A DAY
     Dates: start: 20090601
  2. NOVORAPID PENFILL [Suspect]
     Dosage: 9 U BREAK, LUNCH, TEA
  3. LEVEMIR [Suspect]
     Indication: TYPE 2 DIABETES MELLITUS
     Dosage: ONCE DAILY (AT NIGHT)
     Dates: start: 19990101
  4. ASPIRIN [Concomitant]
     Indication: PRODUCT USED FOR UNKNOWN INDICATION
     Dosage: 1 TAB A.M.
  5. PEXSIG [Concomitant]
     Indication: PRODUCT USED FOR UNKNOWN INDICATION
     Dosage: 1 TAB A.M.
  6. FELODUR [Concomitant]
     Indication: PRODUCT USED FOR UNKNOWN INDICATION
     Dosage: B/TIME
  7. LIPITOR [Concomitant]
     Indication: PRODUCT USED FOR UNKNOWN INDICATION
     Dosage: B/TIME
  8. PANADOL OSTEO [Concomitant]
     Indication: PRODUCT USED FOR UNKNOWN INDICATION
     Dosage: 2 TAB BREAK, 2 TAB LUNCH, 2 TAB TEA
  9. PARIET [Concomitant]
     Indication: PRODUCT USED FOR UNKNOWN INDICATION
     Dosage: 1 BED

REACTIONS (4)
  - FOOT FRACTURE [None]
  - HYPOGLYCAEMIA [None]
  - LOSS OF CONSCIOUSNESS [None]
  - ROAD TRAFFIC ACCIDENT [None]
